FAERS Safety Report 26061334 (Version 1)
Quarter: 2025Q4

REPORT INFORMATION
  Report Type: Spontaneous
  Country: EU (occurrence: EU)
  Receive Date: 20251118
  Receipt Date: 20251118
  Transmission Date: 20260117
  Serious: Yes (Other)
  Sender: B. BRAUN MEDICAL INC.
  Company Number: None

PATIENT
  Age: 20 Year
  Sex: Female

DRUGS (6)
  1. LIDOCAINE HYDROCHLORIDE [Suspect]
     Active Substance: LIDOCAINE HYDROCHLORIDE
     Indication: Local anaesthesia
     Dosage: A TOTAL OF 20 MG OF LIGNOCAINE AND 1 MG OF ADRENALINE (10 MG OF LIGNOCAINE AND 0.5 MG OF ADRENALINE PER TONSIL).
  2. EPINEPHRINE [Suspect]
     Active Substance: EPINEPHRINE
     Indication: Local anaesthesia
     Dosage: A TOTAL OF 20 MG OF LIGNOCAINE AND 1 MG OF ADRENALINE (10 MG OF LIGNOCAINE AND 0.5 MG OF ADRENALINE PER TONSIL).
  3. CEFAZOLIN [Concomitant]
     Active Substance: CEFAZOLIN
     Indication: Antibiotic prophylaxis
     Dosage: A TOTAL OF 20 MG OF LIGNOCAINE AND 1 MG OF ADRENALINE (10 MG OF LIGNOCAINE AND 0.5 MG OF ADRENALINE PER TONSIL).
  4. ATROPINE [Concomitant]
     Active Substance: ATROPINE
  5. NALBUFIN [Concomitant]
  6. MIDAZOLAM [Concomitant]
     Active Substance: MIDAZOLAM

REACTIONS (1)
  - Facial paralysis [Recovered/Resolved]
